FAERS Safety Report 11631714 (Version 1)
Quarter: 2015Q4

REPORT INFORMATION
  Report Type: Spontaneous
  Country: GB (occurrence: GB)
  Receive Date: 20151015
  Receipt Date: 20151015
  Transmission Date: 20160304
  Serious: No
  Sender: FDA-Public Use
  Company Number: GB-GLENMARK PHARMACEUTICALS INC, USA.-2015GMK014953

PATIENT
  Age: 65 Year
  Sex: Female

DRUGS (10)
  1. GABAPENTIN. [Suspect]
     Active Substance: GABAPENTIN
     Indication: TEMPOROMANDIBULAR JOINT SYNDROME
     Dosage: UNK
  2. LITHIUM. [Suspect]
     Active Substance: LITHIUM
     Indication: TEMPOROMANDIBULAR JOINT SYNDROME
     Dosage: UNK
  3. SYNDOL                             /00327201/ [Concomitant]
     Indication: TEMPOROMANDIBULAR JOINT SYNDROME
     Dosage: UNK
  4. INDOMETHACIN. [Suspect]
     Active Substance: INDOMETHACIN
     Indication: TEMPOROMANDIBULAR JOINT SYNDROME
     Dosage: UNK
  5. PREGABALIN. [Suspect]
     Active Substance: PREGABALIN
     Indication: TEMPOROMANDIBULAR JOINT SYNDROME
     Dosage: UNK
  6. CARBAMAZEPINE. [Concomitant]
     Active Substance: CARBAMAZEPINE
     Indication: TEMPOROMANDIBULAR JOINT SYNDROME
     Dosage: UNK
  7. MELATONIN [Concomitant]
     Active Substance: MELATONIN
     Indication: TEMPOROMANDIBULAR JOINT SYNDROME
     Dosage: UNK
  8. AMITRIPTYLINE [Concomitant]
     Active Substance: AMITRIPTYLINE
     Indication: TEMPOROMANDIBULAR JOINT SYNDROME
     Dosage: HALF OF 2.5 MG TABLET BEFORE SLEEP
     Route: 065
  9. PREGABALIN. [Suspect]
     Active Substance: PREGABALIN
     Dosage: UNK
  10. SODIUM VALPROATE [Concomitant]
     Active Substance: VALPROATE SODIUM
     Indication: TEMPOROMANDIBULAR JOINT SYNDROME
     Dosage: UNK

REACTIONS (6)
  - Memory impairment [Unknown]
  - Off label use [Unknown]
  - Weight increased [Unknown]
  - Therapeutic response unexpected [Unknown]
  - Balance disorder [Unknown]
  - Drug ineffective [Unknown]
